FAERS Safety Report 19181613 (Version 5)
Quarter: 2022Q1

REPORT INFORMATION
  Report Type: Report from Study
  Country: IN (occurrence: IN)
  Receive Date: 20210426
  Receipt Date: 20220223
  Transmission Date: 20220423
  Serious: Yes (Hospitalization, Other)
  Sender: FDA-Public Use
  Company Number: NVSC2021IN085912

PATIENT
  Age: 55 Year
  Sex: Male

DRUGS (2)
  1. VOTRIENT [Suspect]
     Active Substance: PAZOPANIB HYDROCHLORIDE
     Indication: Soft tissue sarcoma
     Dosage: 400 MG, QD
     Route: 065
     Dates: start: 20200902, end: 20210901
  2. VOTRIENT [Suspect]
     Active Substance: PAZOPANIB HYDROCHLORIDE
     Dosage: 800 MG, QD
     Route: 065
     Dates: start: 20210902

REACTIONS (9)
  - Opisthotonus [Not Recovered/Not Resolved]
  - Accelerated hypertension [Recovering/Resolving]
  - Nystagmus [Unknown]
  - Gait disturbance [Not Recovered/Not Resolved]
  - Metastases to lymph nodes [Unknown]
  - Ear swelling [Not Recovered/Not Resolved]
  - Otorrhoea [Not Recovered/Not Resolved]
  - Ear pain [Not Recovered/Not Resolved]
  - Asthenia [Not Recovered/Not Resolved]

NARRATIVE: CASE EVENT DATE: 20210101
